FAERS Safety Report 6210891-X (Version None)
Quarter: 2009Q2

REPORT INFORMATION
  Report Type: 
  Country: None (occurrence: None)
  Receive Date: 20090527
  Receipt Date: 20090512
  Transmission Date: 20091009
  Serious: Yes (Death)
  Sender: FDA-Public Use
  Company Number: 2009AL002023

PATIENT
  Sex: Male

DRUGS (13)
  1. DIGOXIN [Suspect]
     Dosage: 0.25MG, PO
     Route: 048
  2. AMLODIPINE [Concomitant]
  3. XOPENEX [Concomitant]
  4. ATROVENT [Concomitant]
  5. PROPOXYPRENE [Concomitant]
  6. GLIPIZIDE [Concomitant]
  7. CEPHALEXIN [Concomitant]
  8. PLAVIX [Concomitant]
  9. CAPTOPRIL [Concomitant]
  10. LEVAQUIN [Concomitant]
  11. SPIRONOLACTONE [Concomitant]
  12. LIPITOR [Concomitant]
  13. METFORMIN HYDROCHLORIDE [Concomitant]

REACTIONS (6)
  - CARDIAC ARREST [None]
  - ECONOMIC PROBLEM [None]
  - EMOTIONAL DISORDER [None]
  - MULTIPLE INJURIES [None]
  - PAIN [None]
  - SOCIAL AVOIDANT BEHAVIOUR [None]
